FAERS Safety Report 14313167 (Version 1)
Quarter: 2017Q4

REPORT INFORMATION
  Report Type: Spontaneous
  Country: IT (occurrence: IT)
  Receive Date: 20171221
  Receipt Date: 20171221
  Transmission Date: 20180321
  Serious: Yes (Life-Threatening, Hospitalization)
  Sender: FDA-Public Use
  Company Number: IT-CIPLA LTD.-2017IT24959

PATIENT

DRUGS (8)
  1. ASPIRIN. [Suspect]
     Active Substance: ASPIRIN
     Indication: PROPHYLAXIS
     Dosage: 1 DF, QD
     Route: 048
  2. EUTIROX [Concomitant]
     Active Substance: LEVOTHYROXINE SODIUM
     Indication: PRODUCT USED FOR UNKNOWN INDICATION
     Dosage: UNK, 25 MCG TABLETS
     Route: 065
  3. WARFARIN [Suspect]
     Active Substance: WARFARIN
     Indication: PROPHYLAXIS
     Dosage: 1 DF, QD
     Route: 048
  4. ZYLLT [Suspect]
     Active Substance: CLOPIDOGREL BISULFATE
     Indication: PROPHYLAXIS
     Dosage: 1 U, QD
     Route: 048
  5. LASIX [Concomitant]
     Active Substance: FUROSEMIDE
     Indication: PRODUCT USED FOR UNKNOWN INDICATION
     Dosage: UNK, LASIX ^25 MG TABLETS
     Route: 065
  6. MADOPAR [Concomitant]
     Active Substance: BENSERAZIDE HYDROCHLORIDE\LEVODOPA
     Indication: PRODUCT USED FOR UNKNOWN INDICATION
     Dosage: UNK,100+25 MG CAPS
     Route: 065
  7. NEUPRO [Concomitant]
     Active Substance: ROTIGOTINE
     Indication: PRODUCT USED FOR UNKNOWN INDICATION
     Dosage: UNK, 4MG/24H TRANSDERMAL PATCHES
     Route: 065
  8. LOPRESSOR [Concomitant]
     Active Substance: METOPROLOL TARTRATE
     Indication: PRODUCT USED FOR UNKNOWN INDICATION
     Dosage: UNK, 100 MG TABLETS
     Route: 065

REACTIONS (6)
  - Haematocrit decreased [Unknown]
  - International normalised ratio abnormal [Unknown]
  - Haematochezia [Unknown]
  - Red blood cell count decreased [Unknown]
  - Melaena [Unknown]
  - Haemoglobin decreased [Unknown]

NARRATIVE: CASE EVENT DATE: 20171112
